FAERS Safety Report 5796568-3 (Version None)
Quarter: 2008Q2

REPORT INFORMATION
  Report Type: 
  Country: None (occurrence: None)
  Receive Date: 20080630
  Receipt Date: 20080630
  Transmission Date: 20081010
  Serious: No
  Sender: FDA-Public Use
  Company Number: None

PATIENT
  Age: 29 Year
  Sex: Female
  Weight: 56.6996 kg

DRUGS (1)
  1. YAZ [Suspect]
     Indication: CONTRACEPTION
     Dosage: 1 PILL DAILY PO
     Route: 048
     Dates: start: 20080215, end: 20080605

REACTIONS (10)
  - ACTIVITIES OF DAILY LIVING IMPAIRED [None]
  - ANXIETY [None]
  - DEPRESSION [None]
  - DISSOCIATION [None]
  - DISTURBANCE IN ATTENTION [None]
  - DIZZINESS [None]
  - DREAMY STATE [None]
  - IMPAIRED DRIVING ABILITY [None]
  - NERVOUS SYSTEM DISORDER [None]
  - NEUROLOGICAL EXAMINATION ABNORMAL [None]
